FAERS Safety Report 8548357 (Version 3)
Quarter: 2013Q2

REPORT INFORMATION
  Report Type: Spontaneous
  Country: US (occurrence: US)
  Receive Date: 20120507
  Receipt Date: 20130417
  Transmission Date: 20140414
  Serious: Yes (Hospitalization)
  Sender: FDA-Public Use
  Company Number: US-US-EMD SERONO, INC.-7129438

PATIENT
  Age: 46 Year
  Sex: Female

DRUGS (1)
  1. REBIF [Suspect]
     Indication: MULTIPLE SCLEROSIS
     Route: 058
     Dates: start: 20120409

REACTIONS (13)
  - Ligament rupture [Unknown]
  - Multiple sclerosis relapse [Unknown]
  - Fall [Unknown]
  - Contusion [Unknown]
  - Muscular weakness [Recovering/Resolving]
  - Migraine [Recovered/Resolved]
  - Balance disorder [Recovering/Resolving]
  - Daydreaming [Unknown]
  - Lymphadenopathy [Recovered/Resolved]
  - Pyrexia [Unknown]
  - Injection site bruising [Not Recovered/Not Resolved]
  - Headache [Unknown]
  - Inappropriate schedule of drug administration [Recovered/Resolved]
